FAERS Safety Report 6929295-7 (Version None)
Quarter: 2010Q3

REPORT INFORMATION
  Report Type: 
  Country: None (occurrence: None)
  Receive Date: 20100817
  Receipt Date: 20100813
  Transmission Date: 20110219
  Serious: Yes (Hospitalization)
  Sender: FDA-Public Use
  Company Number: FR-BRISTOL-MYERS SQUIBB COMPANY-15240773

PATIENT
  Age: 17 Year
  Sex: Male

DRUGS (3)
  1. COUMADIN [Suspect]
     Dosage: TILL 01MAY10 COUMADINE(2MG/D) RESTARTED ON 08MAY10
     Route: 048
     Dates: start: 20091201
  2. INNOHEP [Suspect]
     Dosage: 1DF=12000 IU/DAY
     Route: 048
     Dates: start: 20090120, end: 20100501
  3. GAMMAGARD [Concomitant]

REACTIONS (2)
  - HAEMATEMESIS [None]
  - HYPOPROTHROMBINAEMIA [None]
